FAERS Safety Report 19673991 (Version 1)
Quarter: 2021Q3

REPORT INFORMATION
  Report Type: Spontaneous
  Country: CN (occurrence: CN)
  Receive Date: 20210809
  Receipt Date: 20210809
  Transmission Date: 20211014
  Serious: Yes (Other)
  Sender: FDA-Public Use
  Company Number: CN-JIANGSU HENGRUI MEDICINE CO., LTD.-2114765

PATIENT
  Age: 28 Year
  Sex: Female

DRUGS (5)
  1. RECOMBINANT HUMAN GRANULOCYTE COLONY STIMULATING FACTOR (G?CSF) [Concomitant]
  2. OXALIPLATIN. [Suspect]
     Active Substance: OXALIPLATIN
     Dates: start: 20180423
  3. BEVACIZUMAB. [Suspect]
     Active Substance: BEVACIZUMAB
  4. CAPECITABINE. [Suspect]
     Active Substance: CAPECITABINE
     Dates: start: 20180423
  5. IRINOTECAN HYDROCHLORIDE INJECTION, 20 MG/ML (2 ML AND 5 ML VIALS) (AN [Suspect]
     Active Substance: IRINOTECAN HYDROCHLORIDE
     Indication: RECTAL CANCER
     Dates: start: 20180423

REACTIONS (3)
  - Neurotoxicity [Unknown]
  - Neutropenia [Unknown]
  - Vomiting [Unknown]
